FAERS Safety Report 18853631 (Version 5)
Quarter: 2021Q1

REPORT INFORMATION
  Report Type: Report from Study
  Country: None (occurrence: US)
  Receive Date: 20210205
  Receipt Date: 20210227
  Transmission Date: 20210420
  Serious: Yes (Hospitalization, Other)
  Sender: FDA-Public Use
  Company Number: US-ABBVIE-21K-163-3759646-00

PATIENT
  Age: 77 Year
  Sex: Female
  Weight: 77.18 kg

DRUGS (13)
  1. DUOPA [Suspect]
     Active Substance: CARBIDOPA\LEVODOPA
  2. REQUIP [Concomitant]
     Active Substance: ROPINIROLE HYDROCHLORIDE
     Indication: PRODUCT USED FOR UNKNOWN INDICATION
     Route: 048
  3. ZOCOR [Concomitant]
     Active Substance: SIMVASTATIN
     Indication: PRODUCT USED FOR UNKNOWN INDICATION
     Route: 048
  4. SINEMET CR [Concomitant]
     Active Substance: CARBIDOPA\LEVODOPA
     Indication: PRODUCT USED FOR UNKNOWN INDICATION
     Dosage: 25MG?100MG
     Route: 048
  5. FLUDROCORTISONE ACETATE. [Concomitant]
     Active Substance: FLUDROCORTISONE ACETATE
     Indication: PRODUCT USED FOR UNKNOWN INDICATION
     Route: 048
  6. CALCIUM 500 + VITAMIN D [Concomitant]
     Indication: PRODUCT USED FOR UNKNOWN INDICATION
     Dosage: 500MG + 125MCG
     Route: 048
  7. METFORMIN HCL [Concomitant]
     Active Substance: METFORMIN HYDROCHLORIDE
     Indication: PRODUCT USED FOR UNKNOWN INDICATION
     Route: 048
  8. GLUCOTROL [Concomitant]
     Active Substance: GLIPIZIDE
     Indication: PRODUCT USED FOR UNKNOWN INDICATION
     Route: 048
  9. AMITRIPTYLINE HCL [Concomitant]
     Active Substance: AMITRIPTYLINE
     Indication: PRODUCT USED FOR UNKNOWN INDICATION
     Route: 048
  10. ACTOS [Concomitant]
     Active Substance: PIOGLITAZONE HYDROCHLORIDE
     Indication: PRODUCT USED FOR UNKNOWN INDICATION
     Route: 048
  11. DUOPA [Suspect]
     Active Substance: CARBIDOPA\LEVODOPA
     Indication: PARKINSON^S DISEASE
     Dosage: 7.6 ML/HR CD
     Route: 050
     Dates: start: 20180920
  12. KLONOPIN [Concomitant]
     Active Substance: CLONAZEPAM
     Indication: PRODUCT USED FOR UNKNOWN INDICATION
     Route: 048
  13. AQUAPHOR BABY DIAPER RASH CREAM [Concomitant]
     Indication: PRODUCT USED FOR UNKNOWN INDICATION
     Dosage: TD, 1APP

REACTIONS (34)
  - Hypophagia [Recovering/Resolving]
  - Speech disorder [Recovering/Resolving]
  - Oxygen saturation decreased [Recovering/Resolving]
  - Decubitus ulcer [Not Recovered/Not Resolved]
  - Device difficult to use [Unknown]
  - Urinary tract infection [Unknown]
  - Asthenia [Recovering/Resolving]
  - Fluid intake reduced [Unknown]
  - Loss of consciousness [Recovered/Resolved]
  - Condition aggravated [Unknown]
  - Unevaluable event [Unknown]
  - Hypotension [Recovered/Resolved]
  - Oedema [Unknown]
  - Seizure [Not Recovered/Not Resolved]
  - Cognitive disorder [Recovering/Resolving]
  - Decreased appetite [Recovering/Resolving]
  - Incorrect route of product administration [Recovered/Resolved]
  - Pyrexia [Recovering/Resolving]
  - SARS-CoV-2 test positive [Recovered/Resolved]
  - Nephrolithiasis [Not Recovered/Not Resolved]
  - Pneumonia [Recovering/Resolving]
  - Fatigue [Recovering/Resolving]
  - Lethargy [Recovering/Resolving]
  - Dysstasia [Unknown]
  - Medication error [Unknown]
  - Delirium [Unknown]
  - Cough [Recovered/Resolved]
  - Choking [Recovered/Resolved]
  - Urosepsis [Recovering/Resolving]
  - Urinary tract infection [Recovering/Resolving]
  - Bacteraemia [Unknown]
  - Burning sensation [Recovering/Resolving]
  - Dehydration [Recovered/Resolved]
  - Muscle atrophy [Not Recovered/Not Resolved]

NARRATIVE: CASE EVENT DATE: 201809
